FAERS Safety Report 17246563 (Version 1)
Quarter: 2020Q1

REPORT INFORMATION
  Report Type: Report from Study
  Country: BE (occurrence: BE)
  Receive Date: 20200108
  Receipt Date: 20200108
  Transmission Date: 20200409
  Serious: Yes (Death)
  Sender: FDA-Public Use
  Company Number: BE-PFIZER INC-2020003095

PATIENT

DRUGS (4)
  1. ETOPOSIDE. [Suspect]
     Active Substance: ETOPOSIDE
     Indication: SMALL CELL LUNG CANCER EXTENSIVE STAGE
     Dosage: 100 MG/M2, CYCLIC(D1 TO 3, CYCLES WERE REPEATED EVERY 3 WEEKS)
     Route: 042
  2. MESNA. [Concomitant]
     Active Substance: MESNA
     Dosage: 300 MG/M2, CYCLIC(BEFORE IFOSFAMIDE AND THEN EVERY 4 FOR 72 H)
     Route: 042
  3. IFOSFAMIDE. [Suspect]
     Active Substance: IFOSFAMIDE
     Indication: SMALL CELL LUNG CANCER EXTENSIVE STAGE
     Dosage: 1.5 G/M2 D1 TO 3,WAS DILUTED IN 1 L NACL 0.9% ,ADMINISTERED IV OVER 3H EVERY 3 WEEK
     Route: 042
  4. EPIRUBICIN HCL [Suspect]
     Active Substance: EPIRUBICIN HYDROCHLORIDE
     Indication: SMALL CELL LUNG CANCER EXTENSIVE STAGE
     Dosage: 60 MG/M2, CYCLIC, D1(GIVEN AS A SHORT INFUSION BEFORE ETOPOSIDE, CYCLES WERE REPEATED EVERY 3 WEEK)
     Route: 042

REACTIONS (1)
  - Febrile neutropenia [Fatal]
